FAERS Safety Report 6235468-1 (Version None)
Quarter: 2009Q2

REPORT INFORMATION
  Report Type: 
  Country: None (occurrence: None)
  Receive Date: 20090618
  Receipt Date: 20080312
  Transmission Date: 20091009
  Serious: No
  Sender: FDA-Public Use
  Company Number: US-ASTRAZENECA-2008UW04996

PATIENT
  Age: 83 Year
  Sex: Male
  Weight: 77.1 kg

DRUGS (6)
  1. RHINOCORT [Suspect]
     Indication: NASAL CONGESTION
     Dosage: 32 MCG 120 METER SPRAY/UNIT
     Route: 045
     Dates: start: 20080401
  2. METFORMIN HCL [Concomitant]
  3. ZOCOR [Concomitant]
  4. TOPROL-XL [Concomitant]
  5. DOXYLAMINE SUCCINATE [Concomitant]
  6. ASPIRIN [Concomitant]

REACTIONS (2)
  - OROPHARYNGEAL PAIN [None]
  - TOOTHACHE [None]
